FAERS Safety Report 7327927-5 (Version None)
Quarter: 2011Q1

REPORT INFORMATION
  Report Type: 
  Country: None (occurrence: None)
  Receive Date: 20110303
  Receipt Date: 20110222
  Transmission Date: 20110831
  Serious: No
  Sender: FDA-Public Use
  Company Number: JP-JNJFOC-20110208035

PATIENT

DRUGS (3)
  1. LYRICA [Concomitant]
     Route: 048
  2. METHYCOBAL [Concomitant]
     Route: 048
  3. DUROTEP [Suspect]
     Indication: PRODUCT USED FOR UNKNOWN INDICATION
     Route: 062

REACTIONS (1)
  - DRUG PRESCRIBING ERROR [None]
